FAERS Safety Report 8922642 (Version 1)
Quarter: 2012Q4

REPORT INFORMATION
  Report Type: Spontaneous
  Country: US (occurrence: None)
  Receive Date: 20121115
  Receipt Date: 20121115
  Transmission Date: 20130627
  Serious: Yes (Hospitalization)
  Sender: FDA-Public Use
  Company Number: 001391128A

PATIENT
  Age: 36 Year
  Sex: Female

DRUGS (3)
  1. PROACTIV CLEANSER [Suspect]
     Indication: ACNE
     Dosage: dermal 3-4 years ago
  2. PROACTIV REPAIRING TREATMENT [Suspect]
     Indication: ACNE
     Dosage: dermal 3-4 years ago
  3. PROACTIV REFINING MASK [Suspect]
     Indication: ACNE
     Dosage: 3-4 years ago

REACTIONS (2)
  - Swelling face [None]
  - Infection [None]
